FAERS Safety Report 10930982 (Version 2)
Quarter: 2015Q2

REPORT INFORMATION
  Report Type: Spontaneous
  Country: JP (occurrence: None)
  Receive Date: 20150317
  Receipt Date: 20150420
  Transmission Date: 20150821
  Serious: Yes (Hospitalization)
  Sender: FDA-Public Use
  Company Number: 2015BCR00094

PATIENT
  Age: 85 Year
  Sex: Female

DRUGS (5)
  1. RAPIACTA [Suspect]
     Active Substance: PERAMIVIR
     Indication: INFLUENZA
     Route: 042
     Dates: start: 20150220, end: 20150221
  2. SULBACILLIN (SULBACTAM SODIUM/AMPICILLIN SODIUM) [Concomitant]
  3. CEFTRIAXONE SODIUM HYDRATE (CEFTRIAXONE SODIUM HYDRATE) [Concomitant]
     Active Substance: CEFTRIAXONE SODIUM
  4. AUGMENTIN (AMOXICILLIN HYDRATE/POTASSIUIM CLAVULANATE) [Concomitant]
  5. TAMIFLU [Suspect]
     Active Substance: OSELTAMIVIR PHOSPHATE
     Indication: PNEUMONIA
     Route: 048
     Dates: start: 20150220, end: 20150221

REACTIONS (1)
  - Pneumonia [None]

NARRATIVE: CASE EVENT DATE: 20150225
